FAERS Safety Report 19199382 (Version 1)
Quarter: 2021Q2

REPORT INFORMATION
  Report Type: Spontaneous
  Country: SI (occurrence: SI)
  Receive Date: 20210430
  Receipt Date: 20210430
  Transmission Date: 20210717
  Serious: Yes (Other)
  Sender: FDA-Public Use
  Company Number: NVSC2021SI090420

PATIENT
  Sex: Male

DRUGS (43)
  1. CRESTOR [Suspect]
     Active Substance: ROSUVASTATIN CALCIUM
     Indication: PRODUCT USED FOR UNKNOWN INDICATION
     Dosage: UNK (IN THE EVENING)
     Route: 065
  2. ASPIRIN. [Concomitant]
     Active Substance: ASPIRIN
     Indication: PRODUCT USED FOR UNKNOWN INDICATION
     Dosage: UNK
     Route: 065
  3. LACIPIL [Concomitant]
     Active Substance: LACIDIPINE
     Dosage: 4 MG (IN THE EVENING)
     Route: 065
     Dates: start: 201604
  4. PLAVIX [Concomitant]
     Active Substance: CLOPIDOGREL BISULFATE
     Dosage: 75 MG
     Route: 065
     Dates: start: 202006
  5. ULTOP [Concomitant]
     Indication: PRODUCT USED FOR UNKNOWN INDICATION
     Dosage: UNK (IN THE MORNING)
     Route: 065
  6. PANTOPRAZOLE [Concomitant]
     Active Substance: PANTOPRAZOLE
     Indication: PRODUCT USED FOR UNKNOWN INDICATION
     Dosage: 20 MG (IN THE MORNING)
     Route: 065
     Dates: start: 201604
  7. SORTIS [Concomitant]
     Active Substance: ATORVASTATIN
     Indication: PRODUCT USED FOR UNKNOWN INDICATION
     Dosage: 20 MG (IN THE EVENNING)
     Route: 065
     Dates: start: 201604
  8. CATALIP [Concomitant]
     Active Substance: FENOFIBRATE
     Dosage: 250 MG (IN THE EVENING)
     Route: 065
     Dates: start: 201912
  9. PRENEWEL [Concomitant]
     Active Substance: INDAPAMIDE\PERINDOPRIL ERBUMINE
     Indication: PRODUCT USED FOR UNKNOWN INDICATION
     Dosage: UNK
     Route: 065
     Dates: start: 201606
  10. COUPET [Suspect]
     Active Substance: ROSUVASTATIN CALCIUM
     Indication: HYPERCHOLESTEROLAEMIA
     Dosage: 10 MG (IN THE EVENING)
     Route: 065
     Dates: start: 201104, end: 201106
  11. PRENESSA [Concomitant]
     Active Substance: PERINDOPRIL
     Dosage: 8 MG (IN THE MORNING)
     Route: 065
     Dates: start: 201912
  12. LACIPIL [Concomitant]
     Active Substance: LACIDIPINE
     Dosage: 4 MG (IN THE EVENING)
     Route: 065
     Dates: start: 201104
  13. LACIPIL [Concomitant]
     Active Substance: LACIDIPINE
     Dosage: 4 MG (IN THE EVENING)
     Route: 065
     Dates: start: 201111
  14. NOLPAZA [Concomitant]
     Active Substance: PANTOPRAZOLE SODIUM
     Indication: PRODUCT USED FOR UNKNOWN INDICATION
     Dosage: 20 MG (IN THE MORNING)
     Route: 065
     Dates: start: 201912
  15. PRENESSA [Concomitant]
     Active Substance: PERINDOPRIL
     Dosage: 4 MG IN THE MORNING AND 2 MG IN THE EVENING
     Route: 065
     Dates: start: 201104
  16. LACIPIL [Concomitant]
     Active Substance: LACIDIPINE
     Indication: PRODUCT USED FOR UNKNOWN INDICATION
     Dosage: 6 MG (IN THE EVENING)
     Route: 065
  17. LACIPIL [Concomitant]
     Active Substance: LACIDIPINE
     Dosage: 6 MG
     Route: 065
     Dates: start: 201912
  18. LACIPIL [Concomitant]
     Active Substance: LACIDIPINE
     Dosage: 6 MG (IN THE EVENING)
     Route: 065
     Dates: start: 201912
  19. EFIENT [Concomitant]
     Active Substance: PRASUGREL HYDROCHLORIDE
     Indication: PRODUCT USED FOR UNKNOWN INDICATION
     Dosage: 10 MG (ONE YEAR)
     Route: 065
     Dates: start: 201604
  20. LACIPIL [Concomitant]
     Active Substance: LACIDIPINE
     Dosage: 6 MG (IN THE EVENING)
     Route: 065
     Dates: start: 201606
  21. PLAVIX [Concomitant]
     Active Substance: CLOPIDOGREL BISULFATE
     Dosage: 75 MG (HALF A YEAR)
     Route: 065
     Dates: start: 201912
  22. EFIENT [Concomitant]
     Active Substance: PRASUGREL HYDROCHLORIDE
     Dosage: 10 MG (ONE YEAR)
     Route: 065
     Dates: start: 201606, end: 201704
  23. CATALIP [Concomitant]
     Active Substance: FENOFIBRATE
     Indication: PRODUCT USED FOR UNKNOWN INDICATION
     Dosage: UNK
     Route: 065
     Dates: start: 201606
  24. ATORVASTATIN [Suspect]
     Active Substance: ATORVASTATIN
     Indication: HYPERCHOLESTEROLAEMIA
     Dosage: UNK
     Route: 065
  25. EZETIMIBE. [Suspect]
     Active Substance: EZETIMIBE
     Indication: HYPERCHOLESTEROLAEMIA
     Dosage: UNK
     Route: 065
  26. PRENESSA [Concomitant]
     Active Substance: PERINDOPRIL
     Dosage: 4 MG (IN THE MORNING)
     Route: 065
     Dates: start: 201111
  27. PRENESSA [Concomitant]
     Active Substance: PERINDOPRIL
     Dosage: 8 MG
     Route: 065
     Dates: start: 202006
  28. LACIPIL [Concomitant]
     Active Substance: LACIDIPINE
     Dosage: 4 MG (IN THE EVENING)
     Route: 065
     Dates: start: 201606
  29. PLAVIX [Concomitant]
     Active Substance: CLOPIDOGREL BISULFATE
     Indication: PRODUCT USED FOR UNKNOWN INDICATION
     Dosage: UNK (ONE YEAR)
     Route: 065
  30. PLAVIX [Concomitant]
     Active Substance: CLOPIDOGREL BISULFATE
     Dosage: 75 MG
     Route: 065
     Dates: start: 201111
  31. PANTOPRAZOLE [Concomitant]
     Active Substance: PANTOPRAZOLE
     Dosage: 20 MG (IN THE MORNING)
     Route: 065
     Dates: start: 201606
  32. RANEXA [Concomitant]
     Active Substance: RANOLAZINE
     Indication: PRODUCT USED FOR UNKNOWN INDICATION
     Dosage: 375 MG, Q12H
     Route: 065
     Dates: start: 201606
  33. PRENESSA [Concomitant]
     Active Substance: PERINDOPRIL
     Indication: PRODUCT USED FOR UNKNOWN INDICATION
     Dosage: 8 MG
     Route: 065
  34. PRENESSA [Concomitant]
     Active Substance: PERINDOPRIL
     Dosage: 4 MG (2X1)
     Route: 065
     Dates: start: 201606
  35. PRENESSA [Concomitant]
     Active Substance: PERINDOPRIL
     Dosage: 8 MG
     Route: 065
     Dates: start: 201912
  36. LACIPIL [Concomitant]
     Active Substance: LACIDIPINE
     Dosage: 2 MG (IN THE MORNING)
     Route: 065
     Dates: start: 201606
  37. REPATHA [Concomitant]
     Active Substance: EVOLOCUMAB
     Indication: PRODUCT USED FOR UNKNOWN INDICATION
     Dosage: 140 MG, Q2W (EVERY 14 DAYS)
     Route: 058
  38. REPATHA [Concomitant]
     Active Substance: EVOLOCUMAB
     Dosage: 140 MG, Q2W (1X EVERY 14 DAYS)
     Route: 065
     Dates: start: 202006, end: 202010
  39. SORTIS [Concomitant]
     Active Substance: ATORVASTATIN
     Dosage: 20 MG (IN THE EVENNING)
     Route: 065
     Dates: start: 201606
  40. CATALIP [Concomitant]
     Active Substance: FENOFIBRATE
     Dosage: 250 MG
     Route: 065
     Dates: start: 201912
  41. PRENESSA [Concomitant]
     Active Substance: PERINDOPRIL
     Dosage: 4 MG (2X1)
     Route: 065
     Dates: start: 201604
  42. LACIPIL [Concomitant]
     Active Substance: LACIDIPINE
     Dosage: 6 MG
     Route: 065
     Dates: start: 202006
  43. RANEXA [Concomitant]
     Active Substance: RANOLAZINE
     Dosage: 500 MG, Q12H
     Route: 065
     Dates: start: 201606

REACTIONS (3)
  - Drug intolerance [Unknown]
  - Bradycardia [Unknown]
  - Myalgia [Recovering/Resolving]
